FAERS Safety Report 16403009 (Version 3)
Quarter: 2019Q3

REPORT INFORMATION
  Report Type: Spontaneous
  Country: US (occurrence: US)
  Receive Date: 20190607
  Receipt Date: 20190906
  Transmission Date: 20191004
  Serious: Yes (Other)
  Sender: FDA-Public Use
  Company Number: US-ASTRAZENECA-2019SE10229

PATIENT
  Age: 53 Year
  Sex: Female

DRUGS (21)
  1. ATORVASTATIN [Concomitant]
     Active Substance: ATORVASTATIN
  2. HELIDAC [Concomitant]
     Active Substance: BISMUTH SUBSALICYLATE\METRONIDAZOLE\TETRACYCLINE HYDROCHLORIDE
  3. SULFAMETHOXAZOLE [Concomitant]
     Active Substance: SULFAMETHOXAZOLE
  4. LISINOPRIL. [Concomitant]
     Active Substance: LISINOPRIL
  5. FUROSEMIDE. [Concomitant]
     Active Substance: FUROSEMIDE
  6. NEXIUM [Suspect]
     Active Substance: ESOMEPRAZOLE MAGNESIUM
     Route: 048
     Dates: start: 20080729
  7. NEXIUM [Suspect]
     Active Substance: ESOMEPRAZOLE MAGNESIUM
     Route: 048
     Dates: start: 2008, end: 2016
  8. FLUTICASONE. [Concomitant]
     Active Substance: FLUTICASONE
  9. LAMISIL [Concomitant]
     Active Substance: TERBINAFINE HYDROCHLORIDE
  10. ALDACTONE [Concomitant]
     Active Substance: SPIRONOLACTONE
  11. DOCUSATE SODIUM. [Concomitant]
     Active Substance: DOCUSATE SODIUM
  12. LACTULOSE. [Concomitant]
     Active Substance: LACTULOSE
  13. WARFARIN SODIUM. [Concomitant]
     Active Substance: WARFARIN SODIUM
  14. IBUPROFEN. [Concomitant]
     Active Substance: IBUPROFEN
  15. PROAIR HFA [Concomitant]
     Active Substance: ALBUTEROL SULFATE
  16. CLOTRIMAZOLE. [Concomitant]
     Active Substance: CLOTRIMAZOLE
  17. NOVOLIN [Concomitant]
     Active Substance: INSULIN HUMAN
  18. LANOXIN [Concomitant]
     Active Substance: DIGOXIN
  19. METOPROLOL SUCCINATE. [Concomitant]
     Active Substance: METOPROLOL SUCCINATE
  20. CYCLOBENZAPRINE. [Concomitant]
     Active Substance: CYCLOBENZAPRINE
  21. TETRACYCLINE [Concomitant]
     Active Substance: TETRACYCLINE

REACTIONS (4)
  - Renal failure [Unknown]
  - End stage renal disease [Unknown]
  - Chronic kidney disease [Not Recovered/Not Resolved]
  - Rebound acid hypersecretion [Unknown]

NARRATIVE: CASE EVENT DATE: 2014
